FAERS Safety Report 15787474 (Version 2)
Quarter: 2019Q1

REPORT INFORMATION
  Report Type: Spontaneous
  Country: US (occurrence: US)
  Receive Date: 20190103
  Receipt Date: 20190108
  Transmission Date: 20190417
  Serious: Yes (Other)
  Sender: FDA-Public Use
  Company Number: US-PFIZER INC-2018535209

PATIENT
  Sex: Female

DRUGS (1)
  1. PREMPRO [Suspect]
     Active Substance: ESTROGENS, CONJUGATED\MEDROXYPROGESTERONE ACETATE
     Dosage: UNK (0.3) (FOR 2 WEEKS)

REACTIONS (7)
  - Mental impairment [Unknown]
  - Insomnia [Unknown]
  - Depression [Unknown]
  - Tongue disorder [Unknown]
  - Hot flush [Not Recovered/Not Resolved]
  - Menorrhagia [Unknown]
  - Mood altered [Unknown]
